FAERS Safety Report 4585441-4 (Version None)
Quarter: 2005Q1

REPORT INFORMATION
  Report Type: 
  Country: None (occurrence: None)
  Receive Date: 20050214
  Receipt Date: 20050131
  Transmission Date: 20050727
  Serious: Yes (Hospitalization, Congenital Anomaly)
  Sender: FDA-Public Use
  Company Number: 2005014292

PATIENT
  Age: 1 Day
  Sex: Male

DRUGS (3)
  1. ALPRAZOLAM [Suspect]
     Indication: ILL-DEFINED DISORDER
     Dosage: 2.4 MG
  2. ETIZOLAM (ETIZOLAM) [Suspect]
     Indication: ILL-DEFINED DISORDER
     Dosage: 3 MG
  3. MAPROTILINE HYDROCHLORIDE [Suspect]
     Indication: ILL-DEFINED DISORDER
     Dosage: 3 MG

REACTIONS (9)
  - CONGENITAL ANOMALY [None]
  - DEHYDRATION [None]
  - DRUG EXPOSURE DURING PREGNANCY [None]
  - DRUG WITHDRAWAL SYNDROME NEONATAL [None]
  - FEEDING PROBLEM IN NEWBORN [None]
  - NEONATAL DISORDER [None]
  - NEONATAL INFECTION [None]
  - RHABDOMYOLYSIS [None]
  - SOMNOLENCE NEONATAL [None]
